FAERS Safety Report 9248734 (Version 3)
Quarter: 2013Q2

REPORT INFORMATION
  Report Type: Report from Study
  Country: CA (occurrence: CA)
  Receive Date: 20130423
  Receipt Date: 20130612
  Transmission Date: 20140414
  Serious: Yes (Death, Other)
  Sender: FDA-Public Use
  Company Number: CA-ROCHE-1217135

PATIENT
  Sex: Male
  Weight: 70 kg

DRUGS (4)
  1. AVASTIN [Suspect]
     Indication: GLIOBLASTOMA
     Route: 042
     Dates: start: 20120919, end: 20130125
  2. AVASTIN [Suspect]
     Indication: RADIATION NECROSIS
     Dosage: RESTARTED WITH REDUCED DOSE
     Route: 042
     Dates: start: 20130125, end: 20130314
  3. BENADRYL [Concomitant]
     Route: 048
     Dates: start: 20120919, end: 20121031
  4. METHYLPREDNISOLONE [Concomitant]
     Route: 042
     Dates: start: 20120919, end: 20121031

REACTIONS (2)
  - Disease progression [Unknown]
  - Drug ineffective [Fatal]
